FAERS Safety Report 16541589 (Version 2)
Quarter: 2019Q4

REPORT INFORMATION
  Report Type: Report from Study
  Country: CA (occurrence: CA)
  Receive Date: 20190708
  Receipt Date: 20191004
  Transmission Date: 20200122
  Serious: Yes (Hospitalization, Other)
  Sender: FDA-Public Use
  Company Number: CA-JNJFOC-20190135753

PATIENT
  Age: 56 Year
  Sex: Male

DRUGS (2)
  1. REMICADE [Suspect]
     Active Substance: INFLIXIMAB
     Route: 042
  2. REMICADE [Suspect]
     Active Substance: INFLIXIMAB
     Indication: CROHN^S DISEASE
     Dosage: DOSE ALSO REPORTED AS 5 MG/KG AND 10 MG/KG
     Route: 042
     Dates: start: 20100518

REACTIONS (8)
  - Small intestinal obstruction [Unknown]
  - Urinary tract infection [Recovering/Resolving]
  - Product use issue [Unknown]
  - Laboratory test abnormal [Recovered/Resolved]
  - Kidney infection [Not Recovered/Not Resolved]
  - Off label use [Unknown]
  - Herpes zoster [Recovered/Resolved]
  - Post procedural complication [Recovering/Resolving]

NARRATIVE: CASE EVENT DATE: 2019
